FAERS Safety Report 6552829-1 (Version None)
Quarter: 2010Q1

REPORT INFORMATION
  Report Type: 
  Country: None (occurrence: None)
  Receive Date: 20100121
  Receipt Date: 20100111
  Transmission Date: 20100710
  Serious: Yes (Other)
  Sender: FDA-Public Use
  Company Number: 472577

PATIENT
  Age: 59 Year
  Sex: Female

DRUGS (4)
  1. METHOTREXATE [Suspect]
     Indication: DRUG USE FOR UNKNOWN INDICATION
  2. DIFLUNISAL [Suspect]
     Indication: DRUG USE FOR UNKNOWN INDICATION
  3. NEXIUM [Suspect]
     Indication: DRUG USE FOR UNKNOWN INDICATION
  4. PREDNISONE [Suspect]
     Indication: DRUG USE FOR UNKNOWN INDICATION
     Dosage: 5 MG, ORAL; 4 DOSAGE FORM (2 DAY) ORAL; 50 MG ORAL; 12 DOSAGE FORM (1 DAY); 8 DOSAGE FORM (1 DAY)
     Route: 048

REACTIONS (18)
  - ABASIA [None]
  - ABDOMINAL PAIN UPPER [None]
  - ALOPECIA [None]
  - ARTHRITIS [None]
  - ASTHENIA [None]
  - CARPAL TUNNEL SYNDROME [None]
  - DIZZINESS [None]
  - EYE PAIN [None]
  - GAIT DISTURBANCE [None]
  - HYPOAESTHESIA [None]
  - IMPAIRED DRIVING ABILITY [None]
  - INSOMNIA [None]
  - PAIN [None]
  - PAIN IN EXTREMITY [None]
  - PARAESTHESIA [None]
  - VISION BLURRED [None]
  - VISUAL ACUITY REDUCED [None]
  - VISUAL IMPAIRMENT [None]
